FAERS Safety Report 21456964 (Version 1)
Quarter: 2022Q4

REPORT INFORMATION
  Report Type: Spontaneous
  Country: CN (occurrence: CN)
  Receive Date: 20221014
  Receipt Date: 20221014
  Transmission Date: 20230112
  Serious: Yes (Other)
  Sender: FDA-Public Use
  Company Number: CN-ORGANON-O2210CHN000723

PATIENT
  Age: 18 Year
  Sex: Female
  Weight: 50 kg

DRUGS (3)
  1. REMERON [Suspect]
     Active Substance: MIRTAZAPINE
     Indication: Emotional disorder
     Dosage: 15 MG, QD
     Route: 048
     Dates: start: 20211220, end: 20211229
  2. FLUVOXAMINE MALEATE [Suspect]
     Active Substance: FLUVOXAMINE MALEATE
     Indication: Obsessive-compulsive disorder
     Dosage: 150 MILLIGRAM
     Route: 048
     Dates: start: 20211214
  3. FLUVOXAMINE MALEATE [Suspect]
     Active Substance: FLUVOXAMINE MALEATE
     Dosage: 250MG, QD
     Route: 048
     Dates: end: 20211229

REACTIONS (3)
  - Blood creatinine increased [Recovering/Resolving]
  - Drug-induced liver injury [Unknown]
  - Product use in unapproved indication [Unknown]

NARRATIVE: CASE EVENT DATE: 20211220
